FAERS Safety Report 9250308 (Version 1)
Quarter: 2013Q1

REPORT INFORMATION
  Report Type: Spontaneous
  Country: US (occurrence: None)
  Receive Date: 20121114
  Receipt Date: 20121114
  Transmission Date: 20140127
  Serious: Yes (Hospitalization)
  Sender: FDA-Public Use
  Company Number: A-US2012-59393

PATIENT
  Age: 51 Year
  Sex: Female

DRUGS (16)
  1. VENTAVIS [Suspect]
     Indication: PULMONARY ARTERIAL HYPERTENSION
     Dosage: UNK, UG, 6-9 TIMES DAILY, RESPIRATORY
     Dates: start: 20111218
  2. CALCIUM CHANNEL BLOCKERS [Concomitant]
  3. DUONEB (IPRATROPIUM BROMIDE, SALBUTAMOL SULFATE) [Concomitant]
  4. SPIRIVA (TIOTROPIUM BROMIDE) [Concomitant]
  5. PREMPRO (ESTROGENS CONJUGATED, MEDROXYPROGESTERONE ACETATE) [Concomitant]
  6. CITALOPRAM (CITALOPRAM) [Concomitant]
  7. HYDROCHLOROTHIAZIDE (HYDROCHLOROTHIAZIDE) [Concomitant]
  8. OXYCODONE AND ACETAMINOPHEN (OXYCODONE HYDROCHLORIDE, PARACETAMOL) [Concomitant]
  9. SUMATRIPTAN (SUMATRIPTAN) [Concomitant]
  10. ZOLPIDEM (ZOLPIDEM) [Concomitant]
  11. ASPIRIN (ACETYLSALICYLIC ACID) [Concomitant]
  12. DILTIAZEM [Concomitant]
  13. PREDNISONE (PREDNISONE) [Concomitant]
  14. PRILOSEC [Concomitant]
  15. CYCLOBENZAPRINE (CYCLOENZAPRINE) [Concomitant]
  16. LEVOTHYROXINE (LEVOTHYROXINE) [Concomitant]

REACTIONS (1)
  - Pneumonia [None]
